FAERS Safety Report 7111652-X (Version None)
Quarter: 2010Q4

REPORT INFORMATION
  Report Type: 
  Country: None (occurrence: None)
  Receive Date: 20101118
  Receipt Date: 20101108
  Transmission Date: 20110411
  Serious: Yes (Death, Hospitalization)
  Sender: FDA-Public Use
  Company Number: US-MYLANLABS-2010S1020455

PATIENT
  Age: 54 Year
  Sex: Male
  Weight: 67.5 kg

DRUGS (5)
  1. SUNITINIB MALATE [Suspect]
     Indication: COLON CANCER
     Route: 048
     Dates: start: 20100609, end: 20100914
  2. CILENGITIDE [Suspect]
     Indication: COLON CANCER
     Route: 042
     Dates: start: 20100609
  3. CILENGITIDE [Suspect]
     Route: 042
     Dates: end: 20100920
  4. FENTANYL [Suspect]
     Dosage: Q72H
  5. MORPHINE [Suspect]

REACTIONS (4)
  - ANAEMIA [None]
  - DEATH [None]
  - DECREASED APPETITE [None]
  - FATIGUE [None]
